FAERS Safety Report 4479349-2 (Version None)
Quarter: 2004Q4

REPORT INFORMATION
  Report Type: 
  Country: None (occurrence: None)
  Receive Date: 20041020
  Receipt Date: 20041011
  Transmission Date: 20050328
  Serious: Yes (Hospitalization)
  Sender: FDA-Public Use
  Company Number: US-JNJFOC-20041003359

PATIENT
  Age: 57 Year
  Sex: Female

DRUGS (4)
  1. DURAGESIC [Suspect]
     Route: 062
     Dates: start: 20040101
  2. DURAGESIC [Suspect]
     Route: 062
     Dates: start: 20040101
  3. LIPITOR [Concomitant]
     Route: 049
  4. TRAZODONE HCL [Concomitant]
     Route: 049

REACTIONS (3)
  - APPLICATION SITE BURNING [None]
  - DRUG WITHDRAWAL SYNDROME [None]
  - SKIN BURNING SENSATION [None]
